FAERS Safety Report 4452341-X (Version None)
Quarter: 2004Q3

REPORT INFORMATION
  Report Type: 
  Country: None (occurrence: None)
  Receive Date: 20040915
  Receipt Date: 20040902
  Transmission Date: 20050211
  Serious: No
  Sender: FDA-Public Use
  Company Number: 2004SE04934

PATIENT
  Age: 82 Year
  Sex: Female

DRUGS (1)
  1. PLENDIL [Suspect]
     Indication: HYPERTENSION
     Dosage: 2.5 MG QD PO
     Route: 048
     Dates: start: 20040101

REACTIONS (1)
  - BRADYCARDIA [None]
